FAERS Safety Report 6495375-6 (Version None)
Quarter: 2009Q4

REPORT INFORMATION
  Report Type: 
  Country: None (occurrence: None)
  Receive Date: 20091214
  Receipt Date: 20090616
  Transmission Date: 20100525
  Serious: No
  Sender: FDA-Public Use
  Company Number: US-BRISTOL-MYERS SQUIBB COMPANY-14661375

PATIENT
  Age: 50 Year
  Sex: Female

DRUGS (5)
  1. ABILIFY [Suspect]
     Indication: MAJOR DEPRESSION
  2. ABILIFY [Suspect]
     Indication: MOOD ALTERED
  3. ABILIFY [Suspect]
     Indication: HYPOMANIA
  4. LEXAPRO [Concomitant]
  5. LAMICTAL [Concomitant]

REACTIONS (1)
  - MENSTRUAL DISORDER [None]
